FAERS Safety Report 17469041 (Version 1)
Quarter: 2020Q1

REPORT INFORMATION
  Report Type: Spontaneous
  Country: US (occurrence: US)
  Receive Date: 20200227
  Receipt Date: 20200227
  Transmission Date: 20200409
  Serious: Yes (Other)
  Sender: FDA-Public Use
  Company Number: None

PATIENT
  Age: 24 Year
  Sex: Female
  Weight: 81.65 kg

DRUGS (2)
  1. NEXPLANON [Suspect]
     Active Substance: ETONOGESTREL
     Dates: start: 20171003, end: 20180921
  2. DIAMOX SEQUELS [Concomitant]
     Active Substance: ACETAZOLAMIDE

REACTIONS (12)
  - Papilloedema [None]
  - Optic nerve disorder [None]
  - Fatigue [None]
  - Depression [None]
  - Implantation complication [None]
  - Idiopathic intracranial hypertension [None]
  - Pain [None]
  - Quality of life decreased [None]
  - Weight increased [None]
  - Chromaturia [None]
  - Complication associated with device [None]
  - Ocular icterus [None]

NARRATIVE: CASE EVENT DATE: 20190215
